FAERS Safety Report 13140482 (Version 1)
Quarter: 2017Q1

REPORT INFORMATION
  Report Type: Spontaneous
  Country: US (occurrence: US)
  Receive Date: 20170123
  Receipt Date: 20170123
  Transmission Date: 20170428
  Serious: Yes (Other)
  Sender: FDA-Public Use
  Company Number: US-UNITED THERAPEUTICS-UNT-2016-017138

PATIENT
  Age: 46 Year
  Sex: Female
  Weight: 62.13 kg

DRUGS (5)
  1. REMODULIN [Suspect]
     Active Substance: TREPROSTINIL
     Indication: PULMONARY ARTERIAL HYPERTENSION
     Dosage: 0.144 ?G/KG, CONTINUING
     Route: 041
     Dates: start: 20140718
  2. OPSUMIT [Concomitant]
     Active Substance: MACITENTAN
     Indication: PRODUCT USED FOR UNKNOWN INDICATION
  3. SILDENAFIL. [Concomitant]
     Active Substance: SILDENAFIL
     Indication: PRODUCT USED FOR UNKNOWN INDICATION
  4. REMODULIN [Suspect]
     Active Substance: TREPROSTINIL
     Dosage: 0.144 ?G/KG, CONTINUING
     Route: 041
     Dates: start: 20140723
  5. REMODULIN [Suspect]
     Active Substance: TREPROSTINIL
     Dosage: 0.146 ?G/KG, CONTINUING
     Route: 041

REACTIONS (6)
  - Injection site erythema [Unknown]
  - Hypotension [Unknown]
  - Injection site pain [Unknown]
  - Vomiting [Not Recovered/Not Resolved]
  - Device dislocation [Unknown]
  - Dizziness [Not Recovered/Not Resolved]

NARRATIVE: CASE EVENT DATE: 201611
